FAERS Safety Report 9197353 (Version 1)
Quarter: 2013Q1

REPORT INFORMATION
  Report Type: Spontaneous
  Country: FR (occurrence: FR)
  Receive Date: 20130328
  Receipt Date: 20130328
  Transmission Date: 20140127
  Serious: Yes (Hospitalization)
  Sender: FDA-Public Use
  Company Number: FR-PFIZER INC-2013095509

PATIENT
  Age: 8 Year
  Sex: Female
  Weight: 27 kg

DRUGS (8)
  1. TRIFLUCAN [Suspect]
     Indication: CANDIDA INFECTION
     Dosage: 12 MG/KG DAILY
     Dates: start: 20130124, end: 20130207
  2. TRIFLUCAN [Suspect]
     Dosage: 6 MG/KG DAILY
     Dates: start: 20130208
  3. INEXIUM [Concomitant]
  4. URSOLVAN [Concomitant]
  5. AMIKLIN [Concomitant]
     Indication: CYSTITIS
     Dosage: UNK
     Dates: start: 20130119, end: 20130123
  6. CIFLOX [Concomitant]
     Indication: CYSTITIS
     Dosage: UNK
     Dates: start: 20130119, end: 20130204
  7. ROCEPHINE [Concomitant]
     Dosage: UNK
     Dates: start: 20130204, end: 20130205
  8. VESIRIG [Concomitant]

REACTIONS (1)
  - Pancreatitis acute [Unknown]
